FAERS Safety Report 14234970 (Version 1)
Quarter: 2017Q4

REPORT INFORMATION
  Report Type: Report from Study
  Country: IL (occurrence: IL)
  Receive Date: 20171129
  Receipt Date: 20171129
  Transmission Date: 20180321
  Serious: Yes (Other)
  Sender: FDA-Public Use
  Company Number: IL-CIPLA LTD.-2017IL21180

PATIENT

DRUGS (2)
  1. GEMCITABINE [Suspect]
     Active Substance: GEMCITABINE\GEMCITABINE HYDROCHLORIDE
     Indication: ADENOCARCINOMA PANCREAS
     Dosage: 1000 MG/M2, WEEKLY ? 3 OF 4 WK
     Route: 042
  2. CURCUMIN/DESMETHOXYCURCUMIN/BISDESMETHOXYCURCUMIN [Suspect]
     Active Substance: CURCUMIN
     Indication: ADENOCARCINOMA PANCREAS
     Dosage: 450MG /40MG /10MG, 4000 MG TWICE DAILY
     Route: 048

REACTIONS (4)
  - Gastrointestinal toxicity [Unknown]
  - Feeling abnormal [None]
  - Abdominal distension [None]
  - Abdominal pain [None]
